FAERS Safety Report 15126814 (Version 1)
Quarter: 2018Q3

REPORT INFORMATION
  Report Type: Spontaneous
  Country: US (occurrence: US)
  Receive Date: 20180710
  Receipt Date: 20180710
  Transmission Date: 20181010
  Serious: No
  Sender: FDA-Public Use
  Company Number: US-TARO-2017TAR00580

PATIENT
  Age: 4 Year
  Sex: Male
  Weight: 16.78 kg

DRUGS (1)
  1. CETIRIZINE HCL [Suspect]
     Active Substance: CETIRIZINE HYDROCHLORIDE
     Dosage: UNK
     Route: 048
     Dates: start: 20170712, end: 20170712

REACTIONS (4)
  - Somnolence [Not Recovered/Not Resolved]
  - Accidental exposure to product by child [Recovered/Resolved]
  - Expired product administered [Recovered/Resolved]
  - Accidental overdose [Recovered/Resolved]

NARRATIVE: CASE EVENT DATE: 20170712
